FAERS Safety Report 23970970 (Version 2)
Quarter: 2024Q3

REPORT INFORMATION
  Report Type: Spontaneous
  Country: JP (occurrence: JP)
  Receive Date: 20240613
  Receipt Date: 20240718
  Transmission Date: 20241017
  Serious: Yes (Death)
  Sender: MYLAN
  Company Number: JP-VIATRISJAPAN-2024M1051183AA

PATIENT
  Age: 96 Year
  Sex: Female
  Weight: 34 kg

DRUGS (12)
  1. CEFTRIAXONE SODIUM [Suspect]
     Active Substance: CEFTRIAXONE SODIUM
     Indication: Pneumonia aspiration
     Dosage: 1 GRAM, BID
     Route: 042
     Dates: start: 20240518, end: 20240526
  2. ANHIBA [Suspect]
     Active Substance: ACETAMINOPHEN
     Indication: Product used for unknown indication
     Dosage: UNK
     Route: 054
     Dates: start: 20240518, end: 20240602
  3. SODIUM CHLORIDE [Concomitant]
     Active Substance: SODIUM CHLORIDE
     Indication: Product used for unknown indication
     Dosage: UNK
     Route: 042
     Dates: start: 20240518, end: 20240529
  4. CALCIUM CHLORIDE\MALTOSE\POTASSIUM CHLORIDE\SODIUM CHLORIDE\SODIUM LAC [Concomitant]
     Active Substance: CALCIUM CHLORIDE\MALTOSE\POTASSIUM CHLORIDE\SODIUM CHLORIDE\SODIUM LACTATE
     Indication: Product used for unknown indication
     Dosage: UNK
     Route: 042
     Dates: start: 20240518, end: 20240601
  5. SOLDEM 3A [Concomitant]
     Active Substance: CARBOHYDRATES\POTASSIUM CHLORIDE\SODIUM CHLORIDE\SODIUM LACTATE
     Indication: Product used for unknown indication
     Dosage: UNK
     Route: 042
     Dates: start: 20240518, end: 20240602
  6. GLYCYRRHIZIN [Concomitant]
     Active Substance: GLYCYRRHIZIN
     Indication: Liver disorder
     Dosage: 40 MILLILITER, QD
     Route: 042
     Dates: start: 20240527, end: 20240602
  7. PIPERACILLIN SODIUM\TAZOBACTAM SODIUM [Concomitant]
     Active Substance: PIPERACILLIN SODIUM\TAZOBACTAM SODIUM
     Indication: Pneumonia aspiration
     Dosage: 4.5 GRAM, TID
     Route: 042
     Dates: start: 20240527, end: 20240529
  8. SOLU-MEDROL [Concomitant]
     Active Substance: METHYLPREDNISOLONE SODIUM SUCCINATE
     Indication: Hepatitis fulminant
     Dosage: UNK
     Route: 042
     Dates: start: 20240531, end: 20240601
  9. Furosemide towa [Concomitant]
     Indication: Product used for unknown indication
     Dosage: 20 MILLIGRAM, BID
     Route: 042
     Dates: start: 20240601, end: 20240602
  10. Adona [Concomitant]
     Indication: Product used for unknown indication
     Dosage: 50 MILLIGRAM
     Route: 042
     Dates: start: 20240601, end: 20240602
  11. TRANEXAMIC ACID [Concomitant]
     Active Substance: TRANEXAMIC ACID
     Indication: Product used for unknown indication
     Dosage: 250 MILLIGRAM, QD
     Route: 042
     Dates: start: 20240601, end: 20240602
  12. SODIUM CHLORIDE [Concomitant]
     Active Substance: SODIUM CHLORIDE
     Indication: Product used for unknown indication
     Dosage: UNK
     Route: 042
     Dates: start: 20240601, end: 20240602

REACTIONS (11)
  - Hepatitis fulminant [Fatal]
  - Drug-induced liver injury [Fatal]
  - Aspartate aminotransferase abnormal [Fatal]
  - Alanine aminotransferase abnormal [Fatal]
  - Blood lactate dehydrogenase abnormal [Fatal]
  - Platelet count decreased [Fatal]
  - Faeces discoloured [Fatal]
  - Epistaxis [Fatal]
  - Blood urea abnormal [Fatal]
  - Blood creatinine abnormal [Fatal]
  - Urine output decreased [Fatal]

NARRATIVE: CASE EVENT DATE: 20240527
